FAERS Safety Report 7565013-X (Version None)
Quarter: 2011Q2

REPORT INFORMATION
  Report Type: 
  Country: None (occurrence: None)
  Receive Date: 20110622
  Receipt Date: 20110425
  Transmission Date: 20111010
  Serious: Yes (Other)
  Sender: FDA-Public Use
  Company Number: US-MYLANLABS-2011S1006441

PATIENT
  Age: 51 Year
  Sex: Male

DRUGS (5)
  1. OMEPRAZOLE [Concomitant]
  2. CLOZAPINE [Suspect]
     Route: 048
     Dates: end: 20110325
  3. MULTI-VITAMIN [Concomitant]
  4. ATIVAN [Concomitant]
  5. CLOZAPINE [Suspect]
     Indication: INTERMITTENT EXPLOSIVE DISORDER
     Route: 048
     Dates: end: 20110325

REACTIONS (3)
  - LEUKOPENIA [None]
  - AGRANULOCYTOSIS [None]
  - GRANULOCYTOPENIA [None]
